FAERS Safety Report 7103423-5 (Version None)
Quarter: 2010Q4

REPORT INFORMATION
  Report Type: 
  Country: None (occurrence: None)
  Receive Date: 20101115
  Receipt Date: 20101109
  Transmission Date: 20110411
  Serious: Yes (Hospitalization)
  Sender: FDA-Public Use
  Company Number: US-GENZYME-RENA-1000801

PATIENT
  Sex: Female

DRUGS (14)
  1. RENAGEL [Suspect]
     Indication: HYPERPHOSPHATAEMIA
     Dosage: 18.4 G, QD
     Route: 048
     Dates: start: 20100108, end: 20100401
  2. RENVELA [Suspect]
     Indication: HYPERPHOSPHATAEMIA
     Dosage: 18.4 G, QD
     Route: 048
     Dates: start: 20100427
  3. ALTERNAGEL [Concomitant]
     Dosage: UNK
     Route: 048
     Dates: start: 20100112, end: 20100116
  4. HYDROCODONE [Concomitant]
     Dosage: UNK
     Route: 048
     Dates: start: 20091208
  5. TOPROL-XL [Concomitant]
     Dosage: 100 MG, BID
     Route: 048
     Dates: start: 20091128
  6. ALBUTEROL [Concomitant]
     Dosage: UNK
     Route: 065
     Dates: start: 20090919
  7. COLACE [Concomitant]
     Dosage: 200 MG, PRN
     Route: 048
     Dates: start: 20090605
  8. ASPIRIN [Concomitant]
     Dosage: 81 MG, QD
     Route: 048
     Dates: start: 20090303
  9. PROCARDIA XL [Concomitant]
     Dosage: 120 MG, QD
     Route: 048
     Dates: start: 20090212
  10. NEPHROCAPS [Concomitant]
     Dosage: UNK
     Route: 048
     Dates: start: 20090207
  11. PREVACID [Concomitant]
     Dosage: 30 MG, QD
     Route: 048
     Dates: start: 20080501
  12. PROMETHAZINE [Concomitant]
     Dosage: UNK
     Route: 048
     Dates: start: 20080501
  13. ENALAPRIL MALEATE [Concomitant]
     Dosage: 20 MG, BID
     Route: 048
     Dates: start: 20080501
  14. TYLENOL [Concomitant]
     Dosage: UNK
     Route: 048
     Dates: start: 20070518

REACTIONS (2)
  - HOSPITALISATION [None]
  - PRURITUS GENERALISED [None]
